FAERS Safety Report 8478385-9 (Version None)
Quarter: 2012Q2

REPORT INFORMATION
  Report Type: 
  Country: None (occurrence: None)
  Receive Date: 20120629
  Receipt Date: 20120625
  Transmission Date: 20120825
  Serious: Yes (Death, Hospitalization, Other)
  Sender: FDA-Public Use
  Company Number: TR-ROXANE LABORATORIES, INC.-2012-RO-01477RO

PATIENT
  Age: 37 Year
  Sex: Female

DRUGS (10)
  1. AZACITIDINE [Suspect]
     Route: 058
  2. FLUDARABINE PHOSPHATE [Suspect]
     Indication: ACUTE MONOCYTIC LEUKAEMIA
  3. GRANULOCYTE COLONY-STIMULATING FACTOR [Suspect]
     Indication: ACUTE MONOCYTIC LEUKAEMIA
  4. CYCLOPHOSPHAMIDE [Suspect]
     Indication: BREAST CANCER
  5. IDARUBICIN HCL [Suspect]
  6. ADRIAMYCIN PFS [Suspect]
     Indication: BREAST CANCER
  7. CYTARABINE [Suspect]
     Indication: ACUTE MONOCYTIC LEUKAEMIA
  8. IDARUBICIN HCL [Suspect]
     Indication: ACUTE MONOCYTIC LEUKAEMIA
  9. CYTARABINE [Suspect]
     Indication: ACUTE MONOCYTIC LEUKAEMIA
  10. AZACITIDINE [Suspect]
     Route: 058

REACTIONS (4)
  - ACUTE MONOCYTIC LEUKAEMIA [None]
  - RESPIRATORY FAILURE [None]
  - SEPSIS [None]
  - BRONCHOPULMONARY ASPERGILLOSIS [None]
